FAERS Safety Report 23366712 (Version 2)
Quarter: 2024Q1

REPORT INFORMATION
  Report Type: Spontaneous
  Country: PH (occurrence: PH)
  Receive Date: 20240104
  Receipt Date: 20240125
  Transmission Date: 20240410
  Serious: Yes (Hospitalization, Other)
  Sender: FDA-Public Use
  Company Number: PH-PFIZER INC-PV202300210042

PATIENT
  Age: 69 Year
  Sex: Female

DRUGS (1)
  1. IBRANCE [Suspect]
     Active Substance: PALBOCICLIB
     Indication: Breast cancer metastatic
     Dosage: UNK

REACTIONS (5)
  - Anaemia of chronic disease [Unknown]
  - Urinary tract infection [Unknown]
  - Cellulitis [Unknown]
  - Asthenia [Unknown]
  - Wound [Unknown]

NARRATIVE: CASE EVENT DATE: 20230101
